FAERS Safety Report 13552959 (Version 3)
Quarter: 2018Q4

REPORT INFORMATION
  Report Type: Spontaneous
  Country: US (occurrence: US)
  Receive Date: 20170517
  Receipt Date: 20181226
  Transmission Date: 20190204
  Serious: Yes (Other)
  Sender: FDA-Public Use
  Company Number: US-PFIZER INC-2017212052

PATIENT
  Age: 61 Year
  Sex: Female
  Weight: 77 kg

DRUGS (8)
  1. PROGESTERONE. [Concomitant]
     Active Substance: PROGESTERONE
     Dosage: UNK
     Dates: start: 2010
  2. GENOTROPIN MQ [Suspect]
     Active Substance: SOMATROPIN
     Indication: HYPOTHALAMO-PITUITARY DISORDER
     Dosage: 0.2 MG, 1X/DAY
     Dates: start: 201704
  3. GENOTROPIN MQ [Suspect]
     Active Substance: SOMATROPIN
     Indication: THYROID DISORDER
     Dosage: 0.2MG-0.4MG (ALTERNATE DOSE), 1X/DAY
  4. PROGESTERONE. [Concomitant]
     Active Substance: PROGESTERONE
     Dosage: 400 MG, DAILY
  5. GENOTROPIN MQ [Suspect]
     Active Substance: SOMATROPIN
     Dosage: 4 MG, ALTERNATE DAY
  6. GENOTROPIN MQ [Suspect]
     Active Substance: SOMATROPIN
     Dosage: 2 MG, ALTERNATE DAY
  7. GENOTROPIN MQ [Suspect]
     Active Substance: SOMATROPIN
     Dosage: DAILY [ALTERNATE 0.4MG AND 0.6MG DAILY]
  8. PROGESTERONE. [Concomitant]
     Active Substance: PROGESTERONE
     Indication: HOT FLUSH
     Dosage: UNK
     Dates: start: 2007

REACTIONS (6)
  - Oestrone increased [Unknown]
  - Drug ineffective [Unknown]
  - Blood thyroid stimulating hormone decreased [Unknown]
  - Wrong technique in device usage process [Unknown]
  - Somnolence [Unknown]
  - Anti-thyroid antibody positive [Unknown]

NARRATIVE: CASE EVENT DATE: 20180706
